FAERS Safety Report 16159379 (Version 2)
Quarter: 2019Q2

REPORT INFORMATION
  Report Type: Report from Study
  Country: US (occurrence: US)
  Receive Date: 20190404
  Receipt Date: 20190507
  Transmission Date: 20190711
  Serious: Yes (Hospitalization)
  Sender: FDA-Public Use
  Company Number: US-ADAMAS PHARMA, LLC-2019ADA00482

PATIENT
  Age: 72 Year
  Sex: Male

DRUGS (16)
  1. TRAMADOL. [Concomitant]
     Active Substance: TRAMADOL
  2. PENICILLIN VK [Concomitant]
     Active Substance: PENICILLIN V POTASSIUM
  3. DEEP BRAIN STIMULATION [Concomitant]
     Dosage: PROGRAMMING UPDATE
     Dates: start: 20181106
  4. VITAMIN B12 [Concomitant]
     Active Substance: CYANOCOBALAMIN
  5. CARBIDOPA/LEVODOPA [Concomitant]
     Active Substance: CARBIDOPA\LEVODOPA
     Dosage: 1 TABLETS, 4X/DAY
  6. CEPHALEXIN. [Concomitant]
     Active Substance: CEPHALEXIN
  7. CORTISONE AC [Concomitant]
  8. VITAMIN B1 [Concomitant]
     Active Substance: THIAMINE HYDROCHLORIDE
  9. DEEP BRAIN STIMULATION [Concomitant]
     Dosage: INITIAL IMPLANTATION
     Dates: start: 201311
  10. GOCOVRI [Suspect]
     Active Substance: AMANTADINE
     Indication: DYSKINESIA
     Dosage: 274 MG, 1X/DAY AT BEDTIME
     Route: 048
     Dates: start: 20180221, end: 20190317
  11. HYDROCODONE/ACETAMINOPHEN [Concomitant]
     Active Substance: ACETAMINOPHEN\HYDROCODONE
  12. IBUPROFEN. [Concomitant]
     Active Substance: IBUPROFEN
  13. METHYLPREDNISOLONE. [Concomitant]
     Active Substance: METHYLPREDNISOLONE
  14. SILVER SULFADIAZINE. [Concomitant]
     Active Substance: SILVER SULFADIAZINE
  15. AMOXICILLIN. [Concomitant]
     Active Substance: AMOXICILLIN
  16. CITALOPRAM [Concomitant]
     Active Substance: CITALOPRAM HYDROBROMIDE
     Dosage: 40 MG, 1X/DAY

REACTIONS (11)
  - Stupor [Not Recovered/Not Resolved]
  - Confusional state [Not Recovered/Not Resolved]
  - Hallucination [Unknown]
  - Muscle rigidity [Not Recovered/Not Resolved]
  - Withdrawal syndrome [Not Recovered/Not Resolved]
  - Dyskinesia [Unknown]
  - Seizure like phenomena [Unknown]
  - Fall [Unknown]
  - Delusion [Unknown]
  - Subdural haematoma [Recovering/Resolving]
  - Weight decreased [Not Recovered/Not Resolved]

NARRATIVE: CASE EVENT DATE: 201901
